FAERS Safety Report 21701262 (Version 1)
Quarter: 2022Q4

REPORT INFORMATION
  Report Type: Report from Study
  Country: US (occurrence: US)
  Receive Date: 20221208
  Receipt Date: 20221208
  Transmission Date: 20230112
  Serious: No
  Sender: FDA-Public Use
  Company Number: US-ABBVIE-4189156

PATIENT
  Age: 22 Year
  Sex: Female

DRUGS (1)
  1. HUMIRA [Suspect]
     Active Substance: ADALIMUMAB
     Indication: Colitis ulcerative
     Route: 058

REACTIONS (7)
  - Drug intolerance [Unknown]
  - Large intestine infection [Unknown]
  - Gastric disorder [Unknown]
  - Discoloured vomit [Unknown]
  - Decreased appetite [Unknown]
  - Feeding disorder [Unknown]
  - Retching [Unknown]

NARRATIVE: CASE EVENT DATE: 20221001
